FAERS Safety Report 19209056 (Version 1)
Quarter: 2021Q2

REPORT INFORMATION
  Report Type: Other
  Country: US (occurrence: US)
  Receive Date: 20210503
  Receipt Date: 20210503
  Transmission Date: 20210717
  Serious: Yes (Hospitalization, Other)
  Sender: FDA-Public Use
  Company Number: US-KALEO, INC.-2021KL000056

PATIENT
  Age: 60 Year
  Sex: Male
  Weight: 142.9 kg

DRUGS (1)
  1. AUVI?Q [Suspect]
     Active Substance: EPINEPHRINE
     Indication: ARTHROPOD STING

REACTIONS (9)
  - Gas gangrene [Recovering/Resolving]
  - Acute kidney injury [Recovered/Resolved]
  - Haemodialysis [Recovered/Resolved]
  - Pain in extremity [Recovered/Resolved]
  - Injection site induration [Recovered/Resolved]
  - Metabolic acidosis [Recovered/Resolved]
  - Tenderness [Recovered/Resolved]
  - Hyperhidrosis [Recovered/Resolved]
  - Necrotising fasciitis [Recovering/Resolving]
